FAERS Safety Report 5302251-0 (Version None)
Quarter: 2007Q2

REPORT INFORMATION
  Report Type: 
  Country: None (occurrence: None)
  Receive Date: 20070419
  Receipt Date: 20060329
  Transmission Date: 20071010
  Serious: No
  Sender: FDA-Public Use
  Company Number: US-GLAXOSMITHKLINE-A0599511A

PATIENT
  Sex: Male

DRUGS (2)
  1. ESKALITH CR [Suspect]
     Dosage: 937.5MG TWICE PER DAY
     Route: 048
  2. LITHOBID [Concomitant]

REACTIONS (1)
  - RENAL IMPAIRMENT [None]
